FAERS Safety Report 14348961 (Version 3)
Quarter: 2018Q1

REPORT INFORMATION
  Report Type: Report from Study
  Country: FR (occurrence: FR)
  Receive Date: 20180104
  Receipt Date: 20180221
  Transmission Date: 20180509
  Serious: Yes (Other)
  Sender: FDA-Public Use
  Company Number: FR-ROCHE-2047005

PATIENT
  Age: 56 Year
  Sex: Male
  Weight: 74 kg

DRUGS (1)
  1. VEMURAFENIB. [Suspect]
     Active Substance: VEMURAFENIB
     Indication: NEOPLASM MALIGNANT
     Dosage: DATE OF LAST ADMINISTRATION OF VEMURAFENIB BEFORE SAE WAS ON 22/DEC/2017.?LAST DOSE ADMINISTERED BEF
     Route: 048
     Dates: start: 20171006

REACTIONS (1)
  - Gamma-glutamyltransferase increased [Recovered/Resolved with Sequelae]

NARRATIVE: CASE EVENT DATE: 20171222
